FAERS Safety Report 7723725-9 (Version None)
Quarter: 2011Q3

REPORT INFORMATION
  Report Type: 
  Country: None (occurrence: None)
  Receive Date: 20110901
  Receipt Date: 20110831
  Transmission Date: 20111222
  Serious: Yes (Death)
  Sender: FDA-Public Use
  Company Number: US-MYLANLABS-2011S1001911

PATIENT
  Sex: Male

DRUGS (2)
  1. FENTANYL-100 [Suspect]
     Route: 062
  2. MORPHINE [Concomitant]

REACTIONS (2)
  - RESPIRATORY DISTRESS [None]
  - UNRESPONSIVE TO STIMULI [None]
